FAERS Safety Report 6788590-5 (Version None)
Quarter: 2010Q2

REPORT INFORMATION
  Report Type: 
  Country: None (occurrence: None)
  Receive Date: 20100623
  Receipt Date: 20080522
  Transmission Date: 20101027
  Serious: No
  Sender: FDA-Public Use
  Company Number: US-PFIZER INC-2008025672

PATIENT
  Sex: Female

DRUGS (4)
  1. DOSTINEX [Suspect]
     Indication: PROLACTINOMA
  2. CABERGOLINE [Suspect]
     Indication: PROLACTINOMA
     Dates: start: 20071001
  3. ORAL CONTRACEPTIVE NOS [Concomitant]
  4. ALLERGY MEDICATION [Concomitant]

REACTIONS (4)
  - BLOOD PROLACTIN INCREASED [None]
  - DIZZINESS [None]
  - HYPOTENSION [None]
  - NAUSEA [None]
